FAERS Safety Report 14696843 (Version 1)
Quarter: 2018Q1

REPORT INFORMATION
  Report Type: Spontaneous
  Country: US (occurrence: US)
  Receive Date: 20180330
  Receipt Date: 20180330
  Transmission Date: 20180509
  Serious: Yes (Other)
  Sender: FDA-Public Use
  Company Number: US-SA-2017SA079927

PATIENT
  Sex: Female

DRUGS (1)
  1. ALLEGRA [Suspect]
     Active Substance: FEXOFENADINE HYDROCHLORIDE
     Indication: MULTIPLE ALLERGIES
     Dosage: INTERMITTENTLY
     Route: 065
     Dates: start: 2013

REACTIONS (8)
  - Lacrimation increased [Unknown]
  - Headache [Unknown]
  - Wheezing [Unknown]
  - Cough [Unknown]
  - Prescribed overdose [Unknown]
  - Bronchospasm [Unknown]
  - Drug ineffective [Unknown]
  - Hypersensitivity [Unknown]
